FAERS Safety Report 21474655 (Version 1)
Quarter: 2022Q4

REPORT INFORMATION
  Report Type: Spontaneous
  Country: US (occurrence: None)
  Receive Date: 20221017
  Receipt Date: 20221017
  Transmission Date: 20230113
  Serious: Yes (Other)
  Sender: FDA-Public Use
  Company Number: None

PATIENT
  Age: 59 Year
  Sex: Female
  Weight: 89 kg

DRUGS (5)
  1. BRIMONIDINE [Suspect]
     Active Substance: BRIMONIDINE TARTRATE
     Indication: Open angle glaucoma
  2. TRAVATAN Z [Suspect]
     Active Substance: TRAVOPROST
     Indication: Open angle glaucoma
  3. ZIOPTAN [Suspect]
     Active Substance: TAFLUPROST
  4. TIMOPTIC [Concomitant]
     Active Substance: TIMOLOL MALEATE
  5. XELPROS [Concomitant]
     Active Substance: LATANOPROST

REACTIONS (9)
  - Skin irritation [None]
  - Erythema [None]
  - Skin weeping [None]
  - Skin exfoliation [None]
  - Conjunctivitis allergic [None]
  - Fatigue [None]
  - Drug intolerance [None]
  - Hypersensitivity [None]
  - Dry mouth [None]

NARRATIVE: CASE EVENT DATE: 20180523
